FAERS Safety Report 18568424 (Version 1)
Quarter: 2020Q4

REPORT INFORMATION
  Report Type: Spontaneous
  Country: AT (occurrence: AT)
  Receive Date: 20201202
  Receipt Date: 20201202
  Transmission Date: 20210114
  Serious: Yes (Other)
  Sender: FDA-Public Use
  Company Number: AT-AMGEN-AUTSP2020193558

PATIENT
  Age: 25 Year
  Sex: Male

DRUGS (1)
  1. BLINCYTO [Suspect]
     Active Substance: BLINATUMOMAB
     Indication: B PRECURSOR TYPE ACUTE LEUKAEMIA
     Dosage: UNK
     Route: 065
     Dates: start: 201910, end: 201911

REACTIONS (3)
  - Acute lymphocytic leukaemia recurrent [Unknown]
  - Transaminases increased [Unknown]
  - Off label use [Unknown]

NARRATIVE: CASE EVENT DATE: 2019
